FAERS Safety Report 23035350 (Version 1)
Quarter: 2023Q4

REPORT INFORMATION
  Report Type: Spontaneous
  Country: IL (occurrence: IL)
  Receive Date: 20231005
  Receipt Date: 20231005
  Transmission Date: 20240109
  Serious: Yes (Hospitalization, Other)
  Sender: FDA-Public Use
  Company Number: IL-NATCOUSA-2023-NATCOUSA-000175

PATIENT
  Age: 61 Year
  Sex: Male

DRUGS (4)
  1. IMATINIB [Suspect]
     Active Substance: IMATINIB
     Indication: Chronic myeloid leukaemia
     Route: 065
  2. IMATINIB [Suspect]
     Active Substance: IMATINIB
     Indication: Chronic myeloid leukaemia
     Dosage: 800 MG DAILY (400 MG 2/DAY)
     Route: 065
     Dates: end: 200510
  3. IMATINIB [Suspect]
     Active Substance: IMATINIB
     Indication: Chronic myeloid leukaemia
     Dosage: PATIENT ACHIEVED COMPLETE REMISSION AND RECEIVED IMATINIB 400 MG?TWICE DAILY UNTIL AUGUST 2013
     Route: 065
  4. IMATINIB [Suspect]
     Active Substance: IMATINIB
     Indication: Chronic myeloid leukaemia
     Route: 065
     Dates: end: 201704

REACTIONS (9)
  - Pemphigoid [Unknown]
  - Toxicity to various agents [Unknown]
  - Cholelithiasis [Unknown]
  - Cerebrovascular accident [Unknown]
  - Diarrhoea [Unknown]
  - Renal failure [Unknown]
  - Asthenia [Unknown]
  - Renal impairment [Unknown]
  - Therapy partial responder [Unknown]
